FAERS Safety Report 21662012 (Version 1)
Quarter: 2022Q4

REPORT INFORMATION
  Report Type: Spontaneous
  Country: DE (occurrence: DE)
  Receive Date: 20221130
  Receipt Date: 20221130
  Transmission Date: 20230112
  Serious: Yes (Hospitalization)
  Sender: FDA-Public Use
  Company Number: DE-009507513-2211DEU008710

PATIENT
  Age: 42 Year
  Sex: Female

DRUGS (4)
  1. KEYTRUDA [Suspect]
     Active Substance: PEMBROLIZUMAB
     Indication: Cervix cancer metastatic
     Dosage: 6 CYCLES/Q3W
     Dates: start: 202207, end: 202210
  2. BEVACIZUMAB [Suspect]
     Active Substance: BEVACIZUMAB
     Indication: Cervix cancer metastatic
     Dosage: UNK
     Dates: start: 202207, end: 2022
  3. CARBOPLATIN [Concomitant]
     Active Substance: CARBOPLATIN
     Indication: Cervix cancer metastatic
     Dosage: UNK
     Dates: start: 202207, end: 2022
  4. PACLITAXEL [Concomitant]
     Active Substance: PACLITAXEL
     Indication: Cervix cancer metastatic
     Dosage: UNK
     Dates: start: 202207, end: 2022

REACTIONS (2)
  - Hyperventilation [Recovered/Resolved]
  - Hypersensitivity [Recovered/Resolved]

NARRATIVE: CASE EVENT DATE: 20221001
